FAERS Safety Report 16453301 (Version 1)
Quarter: 2019Q2

REPORT INFORMATION
  Report Type: Spontaneous
  Country: US (occurrence: US)
  Receive Date: 20190619
  Receipt Date: 20190619
  Transmission Date: 20190711
  Serious: Yes (Other)
  Sender: FDA-Public Use
  Company Number: US-ROCHE-2247901

PATIENT
  Age: 65 Year
  Sex: Female
  Weight: 55.39 kg

DRUGS (3)
  1. THYROID [Concomitant]
     Active Substance: LEVOTHYROXINE\LIOTHYRONINE
  2. PRILOSEC [Concomitant]
     Active Substance: OMEPRAZOLE MAGNESIUM
     Indication: GASTROOESOPHAGEAL REFLUX DISEASE
     Dosage: ONGOING: YES
     Route: 065
  3. ACTEMRA [Suspect]
     Active Substance: TOCILIZUMAB
     Indication: RHEUMATOID ARTHRITIS
     Dosage: ONGOING: YES
     Route: 042
     Dates: start: 20181119

REACTIONS (2)
  - Respiratory tract infection [Not Recovered/Not Resolved]
  - Rheumatoid arthritis [Not Recovered/Not Resolved]

NARRATIVE: CASE EVENT DATE: 201812
